FAERS Safety Report 4427678-0 (Version None)
Quarter: 2004Q3

REPORT INFORMATION
  Report Type: 
  Country: None (occurrence: None)
  Receive Date: 20040816
  Receipt Date: 20040816
  Transmission Date: 20050211
  Serious: Yes (Hospitalization)
  Sender: FDA-Public Use
  Company Number: None

PATIENT
  Age: 31 Year
  Sex: Female
  Weight: 55.3388 kg

DRUGS (2)
  1. LAMISIL [Suspect]
     Indication: ONYCHOMYCOSIS
     Dosage: 250MG DAY ORAL
     Route: 048
     Dates: start: 20040205, end: 20040615
  2. BIRTH CONTROL PILLS [Concomitant]

REACTIONS (10)
  - ABDOMINAL PAIN UPPER [None]
  - ANOREXIA [None]
  - CHROMATURIA [None]
  - FAECES PALE [None]
  - FATIGUE [None]
  - JAUNDICE [None]
  - NAUSEA [None]
  - PRURITUS [None]
  - THINKING ABNORMAL [None]
  - WEIGHT DECREASED [None]
